FAERS Safety Report 6075497-4 (Version None)
Quarter: 2009Q1

REPORT INFORMATION
  Report Type: 
  Country: None (occurrence: None)
  Receive Date: 20090212
  Receipt Date: 20090207
  Transmission Date: 20090719
  Serious: Yes (Hospitalization)
  Sender: FDA-Public Use
  Company Number: Z0000653A

PATIENT
  Age: 75 Year
  Sex: Female
  Weight: 88.6 kg

DRUGS (2)
  1. LAPATINIB [Suspect]
     Dosage: 1250MG PER DAY
     Route: 048
     Dates: start: 20081222
  2. PACLITAXEL [Suspect]
     Dosage: 125MGM2 CYCLIC
     Route: 042
     Dates: start: 20081222

REACTIONS (1)
  - RENAL FAILURE [None]
